FAERS Safety Report 7910262-1 (Version None)
Quarter: 2011Q4

REPORT INFORMATION
  Report Type: 
  Country: None (occurrence: None)
  Receive Date: 20111111
  Receipt Date: 20111103
  Transmission Date: 20120403
  Serious: No
  Sender: FDA-Public Use
  Company Number: US-B.I. PHARMACEUTICALS,INC./RIDGEFIELD-2011-BP-25530BP

PATIENT
  Sex: Female

DRUGS (7)
  1. ZITHROMAX [Concomitant]
     Indication: BRONCHITIS
     Route: 048
     Dates: start: 20111027, end: 20111101
  2. SINGULAIR [Concomitant]
  3. PREMARIN [Concomitant]
  4. SPIRIVA [Suspect]
     Indication: CHRONIC OBSTRUCTIVE PULMONARY DISEASE
     Dosage: 18 MCG
     Route: 055
     Dates: start: 20091101
  5. ADVAIR DISKUS 100/50 [Concomitant]
  6. CLARITIN [Concomitant]
  7. XOPENEX [Concomitant]
     Dosage: 45 MCG

REACTIONS (3)
  - FOOT FRACTURE [None]
  - BRONCHITIS [None]
  - NEPHROLITHIASIS [None]
